FAERS Safety Report 20585161 (Version 7)
Quarter: 2022Q3

REPORT INFORMATION
  Report Type: Spontaneous
  Country: AR (occurrence: AR)
  Receive Date: 20220311
  Receipt Date: 20220912
  Transmission Date: 20221026
  Serious: Yes (Life-Threatening, Other)
  Sender: FDA-Public Use
  Company Number: AR-PFIZER INC-202200333908

PATIENT
  Age: 81 Year
  Sex: Female

DRUGS (1)
  1. ENBREL [Suspect]
     Active Substance: ETANERCEPT
     Indication: Psoriatic arthropathy
     Dosage: 50 MG, WEEKLY (1 DOSE PER WEEK)
     Route: 065
     Dates: start: 20060728

REACTIONS (10)
  - Full blood count decreased [Not Recovered/Not Resolved]
  - Eye disorder [Not Recovered/Not Resolved]
  - Corneal disorder [Not Recovered/Not Resolved]
  - Blood pressure increased [Unknown]
  - Glaucoma [Not Recovered/Not Resolved]
  - Cerebrovascular accident [Not Recovered/Not Resolved]
  - Anaemia [Not Recovered/Not Resolved]
  - Visual impairment [Unknown]
  - Blood glucose abnormal [Unknown]
  - Clumsiness [Unknown]
